FAERS Safety Report 15702668 (Version 2)
Quarter: 2018Q4

REPORT INFORMATION
  Report Type: Spontaneous
  Country: US (occurrence: US)
  Receive Date: 20181210
  Receipt Date: 20181225
  Transmission Date: 20190205
  Serious: Yes (Other)
  Sender: FDA-Public Use
  Company Number: US-AUROBINDO-AUR-APL-2018-037341

PATIENT
  Age: 74 Year
  Sex: Female
  Weight: 44.44 kg

DRUGS (2)
  1. ATIVAN [Concomitant]
     Active Substance: LORAZEPAM
     Indication: PRODUCT USED FOR UNKNOWN INDICATION
     Route: 065
  2. MIRTAZAPINE TABLETS 15 MG [Suspect]
     Active Substance: MIRTAZAPINE
     Indication: SOMNOLENCE
     Dosage: ONCE DAILY AT NIGHT
     Route: 048
     Dates: start: 20180613

REACTIONS (9)
  - Insomnia [Recovered/Resolved]
  - Delusional disorder, persecutory type [Recovered/Resolved]
  - Social avoidant behaviour [Recovered/Resolved]
  - Amnesia [Recovered/Resolved]
  - Irritability [Recovered/Resolved]
  - Drug ineffective [Unknown]
  - Product prescribing error [Unknown]
  - Agitation [Recovered/Resolved]
  - Abnormal dreams [Recovered/Resolved]
